FAERS Safety Report 4741073-6 (Version None)
Quarter: 2005Q3

REPORT INFORMATION
  Report Type: 
  Country: None (occurrence: None)
  Receive Date: 20050808
  Receipt Date: 20050727
  Transmission Date: 20060218
  Serious: Yes (Hospitalization, Other)
  Sender: FDA-Public Use
  Company Number: USA0507103956

PATIENT
  Sex: Female

DRUGS (2)
  1. FORTEO [Suspect]
  2. PROCRIT [Concomitant]

REACTIONS (3)
  - FALL [None]
  - PHARMACEUTICAL PRODUCT COMPLAINT [None]
  - WRIST FRACTURE [None]
